FAERS Safety Report 23365051 (Version 1)
Quarter: 2024Q1

REPORT INFORMATION
  Report Type: Spontaneous
  Country: FR (occurrence: FR)
  Receive Date: 20240104
  Receipt Date: 20240104
  Transmission Date: 20240410
  Serious: Yes (Hospitalization)
  Sender: FDA-Public Use
  Company Number: FR-SUN PHARMACEUTICAL INDUSTRIES LTD-2023RR-425656

PATIENT
  Age: 67 Year
  Sex: Female

DRUGS (7)
  1. OLANZAPINE [Suspect]
     Active Substance: OLANZAPINE
     Indication: Depression
     Dosage: 7.5 MILLIGRAM, DAILY
     Route: 048
     Dates: start: 20221027, end: 20221104
  2. OLANZAPINE [Suspect]
     Active Substance: OLANZAPINE
     Dosage: 15 MILLIGRAM, DAILY
     Route: 048
     Dates: start: 20221013, end: 20221026
  3. OLANZAPINE [Suspect]
     Active Substance: OLANZAPINE
     Dosage: 5 MILLIGRAM, DAILY
     Route: 048
     Dates: start: 20221004, end: 20221007
  4. OLANZAPINE [Suspect]
     Active Substance: OLANZAPINE
     Dosage: 10 MILLIGRAM, DAILY
     Route: 048
     Dates: start: 20221008, end: 20221012
  5. CLOMIPRAMINE HYDROCHLORIDE [Concomitant]
     Active Substance: CLOMIPRAMINE HYDROCHLORIDE
     Indication: Depression
     Dosage: 150 MILLIGRAM, DAILY
     Route: 048
     Dates: start: 20221008, end: 20221028
  6. CLOMIPRAMINE HYDROCHLORIDE [Concomitant]
     Active Substance: CLOMIPRAMINE HYDROCHLORIDE
     Dosage: 75 MILLIGRAM, DAILY
     Route: 048
     Dates: start: 20221004, end: 20221007
  7. CLOMIPRAMINE HYDROCHLORIDE [Concomitant]
     Active Substance: CLOMIPRAMINE HYDROCHLORIDE
     Dosage: 75 MILLIGRAM, DAILY
     Route: 048
     Dates: start: 20221029, end: 20221104

REACTIONS (1)
  - Hepatic cytolysis [Recovered/Resolved]

NARRATIVE: CASE EVENT DATE: 20221028
